FAERS Safety Report 8447929-5 (Version None)
Quarter: 2012Q2

REPORT INFORMATION
  Report Type: 
  Country: None (occurrence: None)
  Receive Date: 20120619
  Receipt Date: 20120614
  Transmission Date: 20120825
  Serious: Yes (Other)
  Sender: FDA-Public Use
  Company Number: PHEH2012US007533

PATIENT
  Sex: Female
  Weight: 72.562 kg

DRUGS (2)
  1. GILENYA [Suspect]
     Indication: MULTIPLE SCLEROSIS
     Dosage: 0.5 MG, QD
     Route: 048
     Dates: start: 20120323, end: 20120512
  2. LEXAPRO [Concomitant]
     Dosage: UNK UKN
     Route: 048

REACTIONS (5)
  - FATIGUE [None]
  - FEELING ABNORMAL [None]
  - LETHARGY [None]
  - PARAESTHESIA [None]
  - HYPERTENSION [None]
